FAERS Safety Report 4665142-4 (Version None)
Quarter: 2005Q2

REPORT INFORMATION
  Report Type: 
  Country: None (occurrence: None)
  Receive Date: 20050517
  Receipt Date: 20050117
  Transmission Date: 20051028
  Serious: No
  Sender: FDA-Public Use
  Company Number: S05-USA-00243-01

PATIENT
  Age: 47 Year
  Sex: Male

DRUGS (9)
  1. NAMENDA [Suspect]
     Indication: HEAD INJURY
     Dosage: 40 MG QD PO
     Route: 048
     Dates: start: 20041208, end: 20050114
  2. NAMENDA [Suspect]
     Indication: HEAD INJURY
     Dosage: 5 MG QD PO
     Route: 048
     Dates: start: 20040901, end: 20040901
  3. NAMENDA [Suspect]
     Indication: HEAD INJURY
     Dosage: 5 MG BID PO
     Route: 048
     Dates: start: 20040901, end: 20040901
  4. NAMENDA [Suspect]
     Indication: HEAD INJURY
     Dosage: 15 MG QD PO
     Route: 048
     Dates: start: 20040901, end: 20041001
  5. NAMENDA [Suspect]
     Indication: HEAD INJURY
     Dosage: 10 MG BID PO
     Route: 048
     Dates: start: 20041001, end: 20041130
  6. NAMENDA [Suspect]
     Indication: HEAD INJURY
     Dosage: 30 MG QD PO
     Route: 048
     Dates: start: 20041201, end: 20041207
  7. NEURONTIN [Concomitant]
  8. ATIVAN [Concomitant]
  9. NARDIL [Concomitant]

REACTIONS (5)
  - AGITATION [None]
  - CHEST PAIN [None]
  - HEADACHE [None]
  - HYPERTENSION [None]
  - INSOMNIA [None]
